FAERS Safety Report 4344858-3 (Version None)
Quarter: 2004Q2

REPORT INFORMATION
  Report Type: 
  Country: None (occurrence: None)
  Receive Date: 20040423
  Receipt Date: 20030310
  Transmission Date: 20050107
  Serious: No
  Sender: FDA-Public Use
  Company Number: US-GLAXOSMITHKLINE-A0399774A

PATIENT

DRUGS (2)
  1. ZOFRAN [Suspect]
  2. CHEMOTHERAPY [Concomitant]

REACTIONS (1)
  - CONSTIPATION [None]
